FAERS Safety Report 10210848 (Version 1)
Quarter: 2014Q2

REPORT INFORMATION
  Report Type: Spontaneous
  Country: CN (occurrence: CN)
  Receive Date: 20140602
  Receipt Date: 20140602
  Transmission Date: 20141212
  Serious: Yes (Hospitalization)
  Sender: FDA-Public Use
  Company Number: CN-MYLANLABS-2014S1012196

PATIENT
  Age: 77 Year
  Sex: Male

DRUGS (7)
  1. CLOPIDOGREL [Suspect]
     Indication: ANTIPLATELET THERAPY
     Dosage: 75 MG/DAY
     Route: 065
  2. TICAGRELOR [Suspect]
     Indication: ANTIPLATELET THERAPY
     Route: 065
  3. TICAGRELOR [Suspect]
     Indication: ANTIPLATELET THERAPY
     Dosage: 180MG OF LOADING DOSE
     Route: 065
  4. ASPIRIN [Concomitant]
     Indication: ANTIPLATELET THERAPY
     Dosage: 100 MG/DAY
     Route: 065
  5. IPRATROPIUM BROMIDE [Concomitant]
     Indication: ASTHMA
     Route: 065
  6. SALMETEROL [Concomitant]
     Indication: ASTHMA
     Route: 065
  7. FLUTICASONE PROPIONATE [Concomitant]
     Indication: ASTHMA
     Route: 065

REACTIONS (5)
  - Thrombosis in device [Recovered/Resolved]
  - Acute myocardial infarction [Recovered/Resolved]
  - Drug resistance [Recovered/Resolved]
  - Palpitations [Recovered/Resolved]
  - Discomfort [Recovered/Resolved]
